FAERS Safety Report 15423688 (Version 1)
Quarter: 2018Q3

REPORT INFORMATION
  Report Type: Spontaneous
  Country: US (occurrence: US)
  Receive Date: 20180920
  Receipt Date: 20180920
  Transmission Date: 20181010
  Serious: Yes (Other)
  Sender: FDA-Public Use
  Company Number: None

PATIENT
  Sex: Female

DRUGS (2)
  1. HAEGARDA [Suspect]
     Active Substance: HUMAN C1-ESTERASE INHIBITOR
     Indication: COMPLEMENT FACTOR ABNORMAL
     Dosage: ?          OTHER FREQUENCY:EVERY 3 DAYS;?
     Route: 058
     Dates: start: 20180522, end: 20180919
  2. TRAMADOL 50MG [Concomitant]
     Active Substance: TRAMADOL

REACTIONS (1)
  - Hypersensitivity [None]
